FAERS Safety Report 4406550-6 (Version None)
Quarter: 2004Q3

REPORT INFORMATION
  Report Type: 
  Country: None (occurrence: None)
  Receive Date: 20040723
  Receipt Date: 20040719
  Transmission Date: 20050211
  Serious: Yes (Other)
  Sender: FDA-Public Use
  Company Number: GB-ROCHE-374716

PATIENT
  Age: 28 Year
  Sex: Male
  Weight: 110 kg

DRUGS (1)
  1. ROACCUTANE [Suspect]
     Route: 048
     Dates: start: 20030112, end: 20040315

REACTIONS (1)
  - PSORIASIS [None]
